FAERS Safety Report 7285976-X (Version None)
Quarter: 2011Q1

REPORT INFORMATION
  Report Type: 
  Country: None (occurrence: None)
  Receive Date: 20110125
  Receipt Date: 20110113
  Transmission Date: 20110831
  Serious: Yes (Other)
  Sender: FDA-Public Use
  Company Number: 2010-4374

PATIENT
  Age: 11 Year
  Sex: Male

DRUGS (1)
  1. INCRELEX [Suspect]
     Indication: INSULIN-LIKE GROWTH FACTOR DECREASED
     Dosage: PLEASE SEE NARRATIVE FOR DOSING DETAILS (2 IN 1 D),SUBCUTANEOUS
     Route: 058
     Dates: start: 20050101, end: 20091202

REACTIONS (2)
  - INCORRECT DOSE ADMINISTERED [None]
  - BENIGN INTRACRANIAL HYPERTENSION [None]
